FAERS Safety Report 5192053-0 (Version None)
Quarter: 2006Q4

REPORT INFORMATION
  Report Type: 
  Country: None (occurrence: None)
  Receive Date: 20061221
  Receipt Date: 20061221
  Transmission Date: 20070319
  Serious: Yes (Other)
  Sender: FDA-Public Use
  Company Number: None

PATIENT
  Age: 64 Year
  Sex: Male
  Weight: 92.6 kg

DRUGS (8)
  1. TOPROL-XL [Suspect]
  2. NAPROXEN [Concomitant]
  3. LISINOPRIL [Concomitant]
  4. TABLET CUTTER [Concomitant]
  5. AMOXICILLIN 600/CLAV K [Concomitant]
  6. DM 10/GUAIFENESN [Concomitant]
  7. LORATADINE [Concomitant]
  8. NITROGLYCERIN [Concomitant]

REACTIONS (2)
  - CHEST PAIN [None]
  - DIZZINESS [None]
